FAERS Safety Report 25415698 (Version 1)
Quarter: 2025Q2

REPORT INFORMATION
  Report Type: Spontaneous
  Country: CN (occurrence: CN)
  Receive Date: 20250610
  Receipt Date: 20250610
  Transmission Date: 20250717
  Serious: Yes (Other)
  Sender: ACCORD
  Company Number: CN-MLMSERVICE-20250522-PI517337-00249-1

PATIENT
  Age: 66 Year
  Sex: Female

DRUGS (8)
  1. OXALIPLATIN [Suspect]
     Active Substance: OXALIPLATIN
     Indication: Rectal cancer stage IV
     Dates: start: 20231028, end: 202310
  2. RALTITREXED [Suspect]
     Active Substance: RALTITREXED
     Indication: Rectal cancer stage IV
     Dates: start: 20231028, end: 202310
  3. RALTITREXED [Suspect]
     Active Substance: RALTITREXED
     Indication: Metastases to skin
     Dates: start: 20231028, end: 202310
  4. OXALIPLATIN [Suspect]
     Active Substance: OXALIPLATIN
     Indication: Metastases to lymph nodes
     Dates: start: 20231028, end: 202310
  5. RALTITREXED [Suspect]
     Active Substance: RALTITREXED
     Indication: Metastases to soft tissue
     Dates: start: 20231028, end: 202310
  6. RALTITREXED [Suspect]
     Active Substance: RALTITREXED
     Indication: Metastases to lymph nodes
     Dates: start: 20231028, end: 202310
  7. OXALIPLATIN [Suspect]
     Active Substance: OXALIPLATIN
     Indication: Metastases to soft tissue
     Dates: start: 20231028, end: 202310
  8. OXALIPLATIN [Suspect]
     Active Substance: OXALIPLATIN
     Indication: Metastases to skin
     Dates: start: 20231028, end: 202310

REACTIONS (1)
  - Gastrointestinal disorder [Unknown]

NARRATIVE: CASE EVENT DATE: 20230101
